FAERS Safety Report 5153790-7 (Version None)
Quarter: 2006Q4

REPORT INFORMATION
  Report Type: 
  Country: None (occurrence: None)
  Receive Date: 20061120
  Receipt Date: 20061107
  Transmission Date: 20070319
  Serious: Yes (Other)
  Sender: FDA-Public Use
  Company Number: PHNU2006DE03663

PATIENT
  Sex: Female

DRUGS (2)
  1. AREDIA [Suspect]
     Indication: OSTEITIS DEFORMANS
     Dosage: 30 MG, ONCE/SINGLE
     Route: 042
     Dates: start: 20061001, end: 20061001
  2. AREDIA [Suspect]
     Dosage: 30 MG, MONTHLY
     Route: 042
     Dates: start: 20040101, end: 20040101

REACTIONS (6)
  - BLOOD PRESSURE INCREASED [None]
  - CIRCULATORY COLLAPSE [None]
  - DIZZINESS [None]
  - GASTROINTESTINAL PAIN [None]
  - INFLUENZA LIKE ILLNESS [None]
  - ORTHOSTATIC HYPOTENSION [None]
